FAERS Safety Report 6465776-0 (Version None)
Quarter: 2009Q4

REPORT INFORMATION
  Report Type: 
  Country: None (occurrence: None)
  Receive Date: 20091124
  Receipt Date: 20091111
  Transmission Date: 20100525
  Serious: Yes (Hospitalization)
  Sender: FDA-Public Use
  Company Number: 001317

PATIENT
  Sex: Male

DRUGS (4)
  1. NEUPRO [Suspect]
     Dosage: SEE IMAGE
     Route: 062
     Dates: start: 20090101, end: 20090101
  2. NEUPRO [Suspect]
     Dosage: SEE IMAGE
     Route: 062
     Dates: start: 20090501, end: 20090101
  3. NEUPRO [Suspect]
     Dosage: SEE IMAGE
     Route: 062
     Dates: start: 20090101
  4. MADOPAR /00349201/ [Concomitant]

REACTIONS (7)
  - AKINESIA [None]
  - CONTUSION [None]
  - DRUG INEFFECTIVE [None]
  - FALL [None]
  - PRODUCT ADHESION ISSUE [None]
  - PRODUCT EXPIRATION DATE ISSUE [None]
  - SALIVARY HYPERSECRETION [None]
